FAERS Safety Report 11365723 (Version 1)
Quarter: 2015Q3

REPORT INFORMATION
  Report Type: Spontaneous
  Country: CH (occurrence: CH)
  Receive Date: 20150811
  Receipt Date: 20150811
  Transmission Date: 20151125
  Serious: Yes (Hospitalization)
  Sender: FDA-Public Use
  Company Number: CH-ASTRAZENECA-2015SE75423

PATIENT
  Age: 34 Year
  Sex: Male

DRUGS (2)
  1. XEPLION [Suspect]
     Active Substance: PALIPERIDONE PALMITATE
     Indication: SCHIZOPHRENIA
     Route: 030
  2. SEROQUEL [Suspect]
     Active Substance: QUETIAPINE FUMARATE
     Indication: SCHIZOPHRENIA
     Route: 048

REACTIONS (7)
  - Blood sodium decreased [Unknown]
  - Muscular weakness [Unknown]
  - Blood potassium decreased [Unknown]
  - Metabolic alkalosis [Unknown]
  - Blood bicarbonate increased [Unknown]
  - Hypokinesia [Unknown]
  - Dysstasia [Unknown]

NARRATIVE: CASE EVENT DATE: 201506
